FAERS Safety Report 11074737 (Version 1)
Quarter: 2015Q2

REPORT INFORMATION
  Report Type: Report from Study
  Country: FR (occurrence: FR)
  Receive Date: 20150429
  Receipt Date: 20150429
  Transmission Date: 20150821
  Serious: Yes (Hospitalization)
  Sender: FDA-Public Use
  Company Number: FR-ROCHE-1568565

PATIENT
  Sex: Male
  Weight: 90 kg

DRUGS (5)
  1. OXALIPLATIN. [Suspect]
     Active Substance: OXALIPLATIN
     Indication: COLORECTAL CANCER METASTATIC
     Dosage: ONGOING TREATMENT; LAST DOSE PRIOR TO SERIOUS ADVERSE EVENT: 19/OCT/2013
     Route: 065
     Dates: start: 20131004
  2. FOLINIC ACID [Suspect]
     Active Substance: LEUCOVORIN
     Indication: COLORECTAL CANCER METASTATIC
     Dosage: LAST DOSE PRIOR TO SERIOUS ADVERSE EVENT: 19/OCT/2013
     Route: 065
     Dates: start: 20131004
  3. BEVACIZUMAB [Suspect]
     Active Substance: BEVACIZUMAB
     Indication: COLORECTAL CANCER METASTATIC
     Dosage: ONGOING TREATMENT; LAST DOSE PRIOR TO SERIOUS ADVERSE EVENT: 19/OCT/2013
     Route: 065
     Dates: start: 20131004
  4. 5-FLUOROURACIL [Suspect]
     Active Substance: FLUOROURACIL
     Dosage: CONTINUOUS DOSING;
     Route: 065
  5. 5-FLUOROURACIL [Suspect]
     Active Substance: FLUOROURACIL
     Indication: COLORECTAL CANCER METASTATIC
     Dosage: ONGOING TREATMENT; LOAD DOSE; LAST DOSE PRIOR TO SERIOUS ADVERSE EVENT: 19/OCT/2013; NUMBER OF CYCLE
     Route: 065
     Dates: start: 20131004

REACTIONS (3)
  - Sepsis [Recovered/Resolved]
  - Enteritis [Recovered/Resolved]
  - Hyperthermia [Recovered/Resolved]

NARRATIVE: CASE EVENT DATE: 20131023
